FAERS Safety Report 16269972 (Version 1)
Quarter: 2019Q2

REPORT INFORMATION
  Report Type: Spontaneous
  Country: US (occurrence: US)
  Receive Date: 20190502
  Receipt Date: 20190502
  Transmission Date: 20190711
  Serious: Yes (Disabling)
  Sender: FDA-Public Use
  Company Number: None

PATIENT
  Age: 21 Year
  Sex: Female
  Weight: 65.25 kg

DRUGS (5)
  1. EMERGEN-C [Concomitant]
     Active Substance: VITAMINS
  2. ST JOHNS WART [Concomitant]
  3. GABAPENTIN. [Concomitant]
     Active Substance: GABAPENTIN
  4. TYLENOL [Concomitant]
     Active Substance: ACETAMINOPHEN
  5. CIPROFLOXACIN HCL 500 MG [Suspect]
     Active Substance: CIPROFLOXACIN HYDROCHLORIDE
     Indication: URINARY TRACT INFECTION
     Dosage: ?          QUANTITY:14 TABLET(S);?
     Route: 048
     Dates: start: 20190206, end: 20190213

REACTIONS (12)
  - Eye disorder [None]
  - Eating disorder [None]
  - Abdominal pain upper [None]
  - Delirium [None]
  - Abnormal dreams [None]
  - Balance disorder [None]
  - Asthenopia [None]
  - Chest pain [None]
  - Disturbance in attention [None]
  - Anxiety [None]
  - Depression [None]
  - Dizziness [None]

NARRATIVE: CASE EVENT DATE: 20190206
